FAERS Safety Report 5121569-8 (Version None)
Quarter: 2006Q4

REPORT INFORMATION
  Report Type: 
  Country: None (occurrence: None)
  Receive Date: 20061006
  Receipt Date: 20060808
  Transmission Date: 20070319
  Serious: Yes (Hospitalization)
  Sender: FDA-Public Use
  Company Number: DEWYE584508AUG06

PATIENT
  Age: 36 Year
  Sex: Male

DRUGS (5)
  1. ENBREL [Suspect]
     Indication: RHEUMATOID ARTHRITIS
     Route: 058
     Dates: start: 20051101, end: 20051125
  2. DICLOFENAC [Concomitant]
  3. ENALAPRIL MALEATE [Concomitant]
     Dosage: UNKNOWN
     Route: 048
     Dates: start: 20031101
  4. HYDROXYCHLOROQUINE SULFATE [Concomitant]
     Indication: RHEUMATOID ARTHRITIS
     Dosage: 200 MG
     Dates: start: 20031101, end: 20051201
  5. METHOTREXATE [Concomitant]
     Indication: RHEUMATOID ARTHRITIS
     Dosage: 20 - 25 MG ONCE WEEKLY
     Route: 065
     Dates: start: 20040101

REACTIONS (1)
  - BRONCHOSPASM [None]
